FAERS Safety Report 13144019 (Version 2)
Quarter: 2017Q1

REPORT INFORMATION
  Report Type: Spontaneous
  Country: JP (occurrence: JP)
  Receive Date: 20170124
  Receipt Date: 20170207
  Transmission Date: 20170428
  Serious: Yes (Other)
  Sender: FDA-Public Use
  Company Number: JP-ROCHE-1882550

PATIENT
  Age: 92 Year
  Sex: Female

DRUGS (2)
  1. LUCENTIS [Suspect]
     Active Substance: RANIBIZUMAB
     Indication: POLYPOIDAL CHOROIDAL VASCULOPATHY
     Dosage: UNK
     Route: 031
  2. VISUDYNE [Suspect]
     Active Substance: VERTEPORFIN
     Indication: POLYPOIDAL CHOROIDAL VASCULOPATHY
     Dosage: UNK UNK, ONCE/SINGLE
     Route: 042

REACTIONS (6)
  - Visual acuity reduced [Unknown]
  - Macular degeneration [Unknown]
  - Retinal depigmentation [Unknown]
  - Choroidal neovascularisation [Unknown]
  - Choroidal haemorrhage [Unknown]
  - Retinal pigment epitheliopathy [Unknown]
